FAERS Safety Report 9503677 (Version 1)
Quarter: 2013Q3

REPORT INFORMATION
  Report Type: Report from Study
  Country: US (occurrence: US)
  Receive Date: 20130906
  Receipt Date: 20130906
  Transmission Date: 20140515
  Serious: Yes (Hospitalization, Other)
  Sender: FDA-Public Use
  Company Number: US-ABBOTT-13P-163-1141400-00

PATIENT
  Sex: Female
  Weight: 102.15 kg

DRUGS (12)
  1. NIASPAN (COATED) [Suspect]
     Indication: BLOOD CHOLESTEROL INCREASED
     Dates: start: 2010, end: 201109
  2. NIASPAN (COATED) [Interacting]
     Indication: BLOOD CHOLESTEROL INCREASED
     Dates: start: 201109
  3. SYNTHROID [Suspect]
     Indication: HYPOTHYROIDISM
     Dates: start: 2005, end: 2011
  4. LEVOTHYROXINE (GENERIC) [Interacting]
     Indication: HYPOTHYROIDISM
     Dates: start: 2011
  5. LEVOTHYROXINE (GENERIC) [Interacting]
     Dosage: (INCREASED)
  6. LOSARTAN [Concomitant]
     Indication: PRODUCT USED FOR UNKNOWN INDICATION
  7. PLAVIX [Concomitant]
     Indication: PRODUCT USED FOR UNKNOWN INDICATION
  8. LIPITOR [Concomitant]
     Indication: PRODUCT USED FOR UNKNOWN INDICATION
  9. UNKNOWN MEDICATION [Concomitant]
     Indication: PAIN
  10. TRILIPIX [Concomitant]
     Indication: PRODUCT USED FOR UNKNOWN INDICATION
  11. NITROGLYCERIN [Concomitant]
     Indication: CHEST PAIN
  12. ASPIRIN [Concomitant]
     Indication: PRODUCT USED FOR UNKNOWN INDICATION

REACTIONS (15)
  - Coronary artery occlusion [Recovered/Resolved]
  - Chest pain [Recovered/Resolved]
  - Dyspnoea [Recovered/Resolved]
  - Blood thyroid stimulating hormone abnormal [Not Recovered/Not Resolved]
  - Drug interaction [Unknown]
  - Hyperhidrosis [Not Recovered/Not Resolved]
  - Flushing [Not Recovered/Not Resolved]
  - Hot flush [Not Recovered/Not Resolved]
  - Alopecia [Not Recovered/Not Resolved]
  - Onychoclasis [Not Recovered/Not Resolved]
  - Chest pain [Not Recovered/Not Resolved]
  - Dyspnoea [Not Recovered/Not Resolved]
  - Hot flush [Recovering/Resolving]
  - Flushing [Not Recovered/Not Resolved]
  - Hyperhidrosis [Recovering/Resolving]
